FAERS Safety Report 18991458 (Version 3)
Quarter: 2021Q4

REPORT INFORMATION
  Report Type: Spontaneous
  Country: US (occurrence: US)
  Receive Date: 20210310
  Receipt Date: 20211221
  Transmission Date: 20220303
  Serious: Yes (Hospitalization)
  Sender: FDA-Public Use
  Company Number: US-PFIZER INC-2021229279

PATIENT
  Age: 73 Year
  Sex: Female

DRUGS (2)
  1. IBRANCE [Suspect]
     Active Substance: PALBOCICLIB
     Dosage: 125 MG
     Dates: start: 20210201
  2. IBRANCE [Suspect]
     Active Substance: PALBOCICLIB
     Dosage: UNK
     Dates: start: 20210302

REACTIONS (7)
  - Cardiac failure [Unknown]
  - Pericardial effusion [Recovering/Resolving]
  - Thrombosis [Unknown]
  - Burning sensation [Unknown]
  - Vertigo [Unknown]
  - Dizziness [Unknown]
  - Arthritis [Unknown]

NARRATIVE: CASE EVENT DATE: 20210201
